FAERS Safety Report 5028082-7 (Version None)
Quarter: 2006Q2

REPORT INFORMATION
  Report Type: 
  Country: None (occurrence: None)
  Receive Date: 20060613
  Receipt Date: 20060601
  Transmission Date: 20061013
  Serious: Yes (Other)
  Sender: FDA-Public Use
  Company Number: 225357

PATIENT
  Age: 58 Year
  Sex: Male

DRUGS (1)
  1. RAPTIVA [Suspect]
     Indication: PSORIASIS
     Dosage: 0.9 , 1/WEEK, SUBCUTANEOUS
     Route: 058
     Dates: start: 20040503

REACTIONS (1)
  - CARDIAC MURMUR [None]
